FAERS Safety Report 8501527-3 (Version None)
Quarter: 2012Q3

REPORT INFORMATION
  Report Type: 
  Country: None (occurrence: None)
  Receive Date: 20120710
  Receipt Date: 20120703
  Transmission Date: 20120928
  Serious: Yes (Other)
  Sender: FDA-Public Use
  Company Number: JP-PFIZER INC-2012160031

PATIENT
  Age: 70 Year
  Sex: Female

DRUGS (2)
  1. TIMOLOL MALEATE [Concomitant]
     Indication: GLAUCOMA
     Dosage: UNK, LEFT EYE
     Route: 047
  2. XALATAN [Suspect]
     Indication: GLAUCOMA
     Dosage: UNK, BOTH EYES
     Route: 047

REACTIONS (2)
  - UVEITIS [None]
  - INTRAOCULAR PRESSURE INCREASED [None]
